FAERS Safety Report 12798393 (Version 1)
Quarter: 2016Q3

REPORT INFORMATION
  Report Type: Spontaneous
  Country: US (occurrence: US)
  Receive Date: 20160930
  Receipt Date: 20160930
  Transmission Date: 20161109
  Serious: Yes (Disabling)
  Sender: FDA-Public Use
  Company Number: None

PATIENT
  Age: 63 Year
  Sex: Female
  Weight: 52.2 kg

DRUGS (5)
  1. MONTELUKAST [Concomitant]
     Active Substance: MONTELUKAST SODIUM
  2. LEVO-THYROXINE [Concomitant]
     Active Substance: LEVOTHYROXINE
  3. LACTAID [Concomitant]
     Active Substance: LACTASE
  4. PRAVASTATIN. [Suspect]
     Active Substance: PRAVASTATIN
     Indication: BLOOD CHOLESTEROL INCREASED
     Dosage: ?          QUANTITY:1 TABLET(S);?
     Route: 048
     Dates: start: 20160801, end: 20160929
  5. LOSARTAN. [Concomitant]
     Active Substance: LOSARTAN

REACTIONS (8)
  - Memory impairment [None]
  - Decreased appetite [None]
  - Weight decreased [None]
  - Balance disorder [None]
  - Anxiety [None]
  - Insomnia [None]
  - Impaired driving ability [None]
  - Confusional state [None]

NARRATIVE: CASE EVENT DATE: 20160901
